FAERS Safety Report 10503487 (Version 1)
Quarter: 2014Q4

REPORT INFORMATION
  Report Type: Spontaneous
  Country: US (occurrence: US)
  Receive Date: 20141008
  Receipt Date: 20141008
  Transmission Date: 20150528
  Serious: No
  Sender: FDA-Public Use
  Company Number: US-BIOGENIDEC-2014BI100406

PATIENT
  Sex: Female

DRUGS (1)
  1. TECFIDERA [Suspect]
     Active Substance: DIMETHYL FUMARATE
     Indication: CENTRAL NERVOUS SYSTEM LESION
     Dates: start: 20140916

REACTIONS (5)
  - Chest pain [Recovered/Resolved]
  - Erythema [Unknown]
  - Product use issue [Unknown]
  - Feeling hot [Unknown]
  - Central nervous system lesion [Unknown]
